FAERS Safety Report 13621877 (Version 1)
Quarter: 2017Q2

REPORT INFORMATION
  Report Type: Spontaneous
  Country: US (occurrence: US)
  Receive Date: 20170607
  Receipt Date: 20170607
  Transmission Date: 20170830
  Serious: Yes (Other)
  Sender: FDA-Public Use
  Company Number: US-ROCHE-1794130

PATIENT
  Sex: Female

DRUGS (2)
  1. XELODA [Suspect]
     Active Substance: CAPECITABINE
     Dosage: PM; 14 DAYS ON, 7 DAYS OFF
     Route: 048
     Dates: start: 20160602, end: 20160623
  2. XELODA [Suspect]
     Active Substance: CAPECITABINE
     Indication: BREAST CANCER
     Dosage: AM; 14 DAYS ON, 7 DAYS OFF
     Route: 048
     Dates: start: 20160602, end: 20160623

REACTIONS (1)
  - Myocardial infarction [Unknown]
